FAERS Safety Report 10510070 (Version 2)
Quarter: 2014Q4

REPORT INFORMATION
  Report Type: Spontaneous
  Country: US (occurrence: US)
  Receive Date: 20141010
  Receipt Date: 20141121
  Transmission Date: 20150528
  Serious: Yes (Other)
  Sender: FDA-Public Use
  Company Number: US-AMGEN-USASP2014076393

PATIENT
  Age: 53 Year
  Sex: Female
  Weight: 102 kg

DRUGS (2)
  1. KENALOG                            /00031902/ [Concomitant]
  2. PROLIA [Suspect]
     Active Substance: DENOSUMAB
     Indication: OSTEOPOROSIS
     Dosage: 60 MG, Q6MO
     Route: 058
     Dates: start: 20111209

REACTIONS (15)
  - Inflammation [Unknown]
  - Sinus disorder [Unknown]
  - Peripheral swelling [Unknown]
  - Vascular rupture [Recovered/Resolved]
  - Generalised erythema [Not Recovered/Not Resolved]
  - Flushing [Unknown]
  - Muscle spasms [Not Recovered/Not Resolved]
  - Injection site inflammation [Recovered/Resolved]
  - Erythema [Unknown]
  - Injection site erythema [Recovered/Resolved]
  - Injection site swelling [Recovered/Resolved]
  - Ear injury [Recovering/Resolving]
  - Dysgeusia [Not Recovered/Not Resolved]
  - Skin warm [Unknown]
  - Ear haemorrhage [Recovering/Resolving]

NARRATIVE: CASE EVENT DATE: 20140924
